FAERS Safety Report 8620010-8 (Version None)
Quarter: 2012Q3

REPORT INFORMATION
  Report Type: 
  Country: None (occurrence: None)
  Receive Date: 20120816
  Receipt Date: 20120816
  Transmission Date: 20120928
  Serious: Yes (Disabling)
  Sender: FDA-Public Use
  Company Number: None

PATIENT
  Age: 43 Year
  Sex: Male
  Weight: 73 kg

DRUGS (1)
  1. MONTELUKAST [Suspect]
     Indication: NASAL POLYPS
     Dosage: 10 MG DAILY PO
     Route: 048
     Dates: start: 20101120, end: 20120212

REACTIONS (1)
  - ALLERGIC GRANULOMATOUS ANGIITIS [None]
